FAERS Safety Report 6268484-4 (Version None)
Quarter: 2009Q3

REPORT INFORMATION
  Report Type: 
  Country: None (occurrence: None)
  Receive Date: 20090710
  Receipt Date: 20090710
  Transmission Date: 20100115
  Serious: Yes (Other)
  Sender: FDA-Public Use
  Company Number: None

PATIENT
  Sex: Female
  Weight: 18.1439 kg

DRUGS (2)
  1. SINGULAIR [Suspect]
     Indication: ASTHMA
     Dosage: 5 MG I BELIEVE EVERY DAY PO
     Route: 048
     Dates: start: 20060401, end: 20090401
  2. SINGULAIR [Suspect]
     Indication: MULTIPLE ALLERGIES
     Dosage: 5 MG I BELIEVE EVERY DAY PO
     Route: 048
     Dates: start: 20060401, end: 20090401

REACTIONS (4)
  - AFFECTIVE DISORDER [None]
  - FATIGUE [None]
  - PAIN IN EXTREMITY [None]
  - SOMNOLENCE [None]
